FAERS Safety Report 4745919-7 (Version None)
Quarter: 2005Q3

REPORT INFORMATION
  Report Type: 
  Country: None (occurrence: None)
  Receive Date: 20050816
  Receipt Date: 20050810
  Transmission Date: 20060218
  Serious: Yes (Other)
  Sender: FDA-Public Use
  Company Number: 414145

PATIENT
  Sex: Female

DRUGS (7)
  1. COREG [Suspect]
     Route: 048
  2. INSULIN [Concomitant]
  3. NORVASC [Concomitant]
  4. LASIX [Concomitant]
  5. PHENERGAN [Concomitant]
  6. NUTRAVITE [Concomitant]
  7. NITRATE [Concomitant]
     Route: 050

REACTIONS (9)
  - BLOOD POTASSIUM DECREASED [None]
  - FATIGUE [None]
  - FEELING DRUNK [None]
  - HAEMORRHAGE [None]
  - HYPOTENSION [None]
  - LOSS OF CONSCIOUSNESS [None]
  - MOOD ALTERED [None]
  - POLLAKIURIA [None]
  - VOMITING [None]
